FAERS Safety Report 22661451 (Version 1)
Quarter: 2023Q2

REPORT INFORMATION
  Report Type: Report from Study
  Country: US (occurrence: US)
  Receive Date: 20230630
  Receipt Date: 20230630
  Transmission Date: 20230722
  Serious: Yes (Death, Other)
  Sender: FDA-Public Use
  Company Number: US-JAZZ PHARMACEUTICALS-2022-US-036276

PATIENT
  Sex: Female

DRUGS (1)
  1. EPIDIOLEX [Suspect]
     Active Substance: CANNABIDIOL
     Indication: Lennox-Gastaut syndrome
     Dosage: 136 MILLIGRAM
     Route: 048
     Dates: start: 20200613

REACTIONS (3)
  - Craniocerebral injury [Fatal]
  - Hydrocephalus [Fatal]
  - Road traffic accident [Unknown]
